FAERS Safety Report 6028158-1 (Version None)
Quarter: 2008Q4

REPORT INFORMATION
  Report Type: 
  Country: None (occurrence: None)
  Receive Date: 20081231
  Receipt Date: 20081231
  Transmission Date: 20090506
  Serious: Yes (Death, Hospitalization)
  Sender: FDA-Public Use
  Company Number: None

PATIENT

DRUGS (1)
  1. HEPARIN [Suspect]
     Dates: start: 20081215, end: 20081230

REACTIONS (8)
  - ANAPHYLACTIC SHOCK [None]
  - BACK PAIN [None]
  - DISORIENTATION [None]
  - GENERAL PHYSICAL HEALTH DETERIORATION [None]
  - HAEMATOMA [None]
  - MULTI-ORGAN FAILURE [None]
  - PRODUCT CONTAMINATION [None]
  - SHOCK [None]
